FAERS Safety Report 7515595-9 (Version None)
Quarter: 2011Q2

REPORT INFORMATION
  Report Type: 
  Country: None (occurrence: None)
  Receive Date: 20110601
  Receipt Date: 20110524
  Transmission Date: 20111010
  Serious: Yes (Other)
  Sender: FDA-Public Use
  Company Number: FR-GENZYME-CERZ-1002080

PATIENT
  Sex: Female

DRUGS (2)
  1. CEREZYME [Suspect]
     Dosage: UNK
     Route: 042
     Dates: end: 20100401
  2. CEREZYME [Suspect]
     Indication: GAUCHER'S DISEASE
     Dosage: UNK
     Route: 042
     Dates: start: 20100901

REACTIONS (1)
  - INTRA-UTERINE DEATH [None]
